FAERS Safety Report 14398391 (Version 1)
Quarter: 2018Q1

REPORT INFORMATION
  Report Type: Report from Study
  Country: None (occurrence: GB)
  Receive Date: 20180116
  Receipt Date: 20180116
  Transmission Date: 20180509
  Serious: Yes (Death, Hospitalization)
  Sender: FDA-Public Use
  Company Number: GB-ABBVIE-18K-167-2221612-00

PATIENT
  Age: 68 Year
  Sex: Female
  Weight: 121 kg

DRUGS (4)
  1. HYDROXYCHLOROQUINE [Concomitant]
     Active Substance: HYDROXYCHLOROQUINE
     Indication: RHEUMATOID ARTHRITIS
  2. METHOTREXATE. [Concomitant]
     Active Substance: METHOTREXATE
     Indication: RHEUMATOID ARTHRITIS
  3. HUMIRA [Suspect]
     Active Substance: ADALIMUMAB
     Indication: RHEUMATOID ARTHRITIS
     Route: 058
     Dates: start: 20070620, end: 20150626
  4. SULPHASALAZINE [Concomitant]
     Active Substance: SULFASALAZINE
     Indication: RHEUMATOID ARTHRITIS

REACTIONS (7)
  - Cardiac failure congestive [Fatal]
  - Ischaemic stroke [Fatal]
  - Pneumonia aspiration [Fatal]
  - Idiopathic pulmonary fibrosis [Fatal]
  - Atrial fibrillation [Unknown]
  - Pneumonia [Unknown]
  - Pneumonia [Fatal]

NARRATIVE: CASE EVENT DATE: 20150626
